FAERS Safety Report 9300055 (Version 1)
Quarter: 2013Q2

REPORT INFORMATION
  Report Type: Spontaneous
  Country: US (occurrence: US)
  Receive Date: 20130521
  Receipt Date: 20130521
  Transmission Date: 20140414
  Serious: Yes (Hospitalization)
  Sender: FDA-Public Use
  Company Number: US-BAYER-2013-060843

PATIENT
  Age: 27 Year
  Sex: Female

DRUGS (6)
  1. YASMIN [Suspect]
     Dosage: UNK
     Dates: end: 20031231
  2. LEXAPRO [Concomitant]
     Dosage: UNK
     Route: 048
     Dates: start: 20030808, end: 20031021
  3. EFFEXOR [Concomitant]
     Indication: DEPRESSION
     Dosage: UNK
     Route: 048
     Dates: start: 20031021
  4. DEPO MEDROL [Concomitant]
     Route: 030
  5. ZITHROMAX [Concomitant]
     Route: 048
  6. FOLTX [Concomitant]

REACTIONS (1)
  - Pulmonary embolism [None]
